FAERS Safety Report 4382039-8 (Version None)
Quarter: 2004Q2

REPORT INFORMATION
  Report Type: 
  Country: None (occurrence: None)
  Receive Date: 20040615
  Receipt Date: 20040603
  Transmission Date: 20050107
  Serious: Yes (Hospitalization)
  Sender: FDA-Public Use
  Company Number: A0513354A

PATIENT
  Age: 52 Year
  Sex: Male
  Weight: 86.2288 kg

DRUGS (3)
  1. NICODERM CQ [Suspect]
     Indication: EX-SMOKER
     Dosage: 21 MG/PER DAY/TRANSDERMAL
     Route: 062
     Dates: start: 20040401, end: 20040530
  2. BLOOD PRESSURE MEDICATION [Concomitant]
  3. ANTICOAGULANT [Concomitant]

REACTIONS (3)
  - CORONARY ARTERY OCCLUSION [None]
  - DISEASE RECURRENCE [None]
  - MYOCARDIAL INFARCTION [None]
